FAERS Safety Report 10260328 (Version 1)
Quarter: 2014Q2

REPORT INFORMATION
  Report Type: Spontaneous
  Country: US (occurrence: US)
  Receive Date: 20140625
  Receipt Date: 20140625
  Transmission Date: 20141212
  Serious: No
  Sender: FDA-Public Use
  Company Number: US-SA-2014SA067810

PATIENT
  Age: 57 Year
  Sex: Female

DRUGS (6)
  1. AUBAGIO [Suspect]
     Indication: MULTIPLE SCLEROSIS
     Route: 065
  2. ALEVE [Concomitant]
     Indication: ARTHRITIS
     Route: 048
     Dates: start: 20110101
  3. METOPROLOL SUCCINATE [Concomitant]
     Indication: HYPERTENSION
     Route: 048
     Dates: start: 20120801
  4. ACCUPRIL [Concomitant]
     Indication: HYPERTENSION
     Route: 048
     Dates: start: 20010101
  5. VITAMIN B [Concomitant]
     Indication: VITAMIN B12 DEFICIENCY
     Dosage: DOSE: 1 TB
     Route: 048
     Dates: start: 20130725
  6. VITAMIN D3 [Concomitant]
     Indication: NUTRITIONAL SUPPLEMENTATION
     Route: 065
     Dates: start: 20120711

REACTIONS (1)
  - Alopecia [Unknown]
